FAERS Safety Report 9341202 (Version 1)
Quarter: 2013Q2

REPORT INFORMATION
  Report Type: Spontaneous
  Country: NL (occurrence: NL)
  Receive Date: 20130611
  Receipt Date: 20130611
  Transmission Date: 20140414
  Serious: Yes (Other)
  Sender: FDA-Public Use
  Company Number: NL-009507513-1306NLD002441

PATIENT
  Age: 65 Year
  Sex: Male

DRUGS (4)
  1. SIMVASTATIN [Suspect]
     Indication: HYPERCHOLESTEROLAEMIA
     Dosage: 1 DF, QD
     Route: 048
     Dates: start: 201210, end: 201304
  2. PREDNISOLON [Concomitant]
     Dosage: 20 MG, QOD
     Dates: start: 200809
  3. FOSAMAX [Concomitant]
     Dosage: 70 MG, QW
     Route: 048
     Dates: start: 200901
  4. CALCIO (CALCIUM CARBONATE) [Concomitant]
     Dosage: 500 MG, QD
     Dates: start: 200901

REACTIONS (1)
  - Myasthenia gravis [Unknown]
